FAERS Safety Report 9202558 (Version 2)
Quarter: 2013Q4

REPORT INFORMATION
  Report Type: Spontaneous
  Country: US (occurrence: US)
  Receive Date: 20130401
  Receipt Date: 20131203
  Transmission Date: 20140711
  Serious: Yes (Hospitalization, Other)
  Sender: FDA-Public Use
  Company Number: US-BAYER-2013-038834

PATIENT
  Age: 24 Year
  Sex: Female
  Weight: 73.02 kg

DRUGS (5)
  1. YAZ [Suspect]
  2. YASMIN [Suspect]
  3. LEXAPRO [Concomitant]
     Dosage: 20 MG, QD
     Route: 048
  4. KLONOPIN [Concomitant]
     Dosage: 1 MG, QD
     Route: 048
  5. NEXIUM [Concomitant]
     Dosage: UNK UNK, BID

REACTIONS (5)
  - Gallbladder injury [None]
  - Cholecystitis [None]
  - Injury [None]
  - Pain [None]
  - Pain [None]
